FAERS Safety Report 26188857 (Version 1)
Quarter: 2025Q4

REPORT INFORMATION
  Report Type: Report from Study
  Country: US (occurrence: US)
  Receive Date: 20251222
  Receipt Date: 20251222
  Transmission Date: 20260117
  Serious: Yes (Other)
  Sender: ABBVIE
  Company Number: US-ABBVIE-6596313

PATIENT
  Age: 54 Year
  Sex: Male

DRUGS (1)
  1. CREON [Suspect]
     Active Substance: PANCRELIPASE AMYLASE\PANCRELIPASE LIPASE\PANCRELIPASE PROTEASE
     Indication: Pancreatic failure
     Route: 048
     Dates: start: 2005, end: 2005

REACTIONS (10)
  - Pancreatitis necrotising [Unknown]
  - Pancreatic atrophy [Not Recovered/Not Resolved]
  - Pancreatitis chronic [Unknown]
  - Lipase increased [Recovered/Resolved]
  - Lipase decreased [Unknown]
  - Malabsorption [Unknown]
  - Eye disorder [Unknown]
  - Barrett^s oesophagus [Not Recovered/Not Resolved]
  - Gastrooesophageal reflux disease [Unknown]
  - Osteoporosis [Recovered/Resolved with Sequelae]

NARRATIVE: CASE EVENT DATE: 20050101
